FAERS Safety Report 12052770 (Version 2)
Quarter: 2017Q3

REPORT INFORMATION
  Report Type: Spontaneous
  Country: ZA (occurrence: ZA)
  Receive Date: 20160209
  Receipt Date: 20170717
  Transmission Date: 20171127
  Serious: Yes (Other)
  Sender: FDA-Public Use
  Company Number: ZA-GLAXOSMITHKLINE-ZA2016GSK015650

PATIENT
  Age: 50 Year
  Sex: Male

DRUGS (1)
  1. FLONASE [Suspect]
     Active Substance: FLUTICASONE PROPIONATE
     Indication: PRODUCT USED FOR UNKNOWN INDICATION
     Dosage: UNK
     Dates: start: 20160202

REACTIONS (6)
  - Vomiting [Unknown]
  - Gait inability [Unknown]
  - Speech disorder [Unknown]
  - Hemiparesis [Unknown]
  - Nonspecific reaction [Unknown]
  - Fall [Unknown]

NARRATIVE: CASE EVENT DATE: 20160202
